FAERS Safety Report 12380123 (Version 2)
Quarter: 2016Q3

REPORT INFORMATION
  Report Type: Report from Study
  Country: US (occurrence: US)
  Receive Date: 20160518
  Receipt Date: 20160810
  Transmission Date: 20161109
  Serious: No
  Sender: FDA-Public Use
  Company Number: US-TAKEDA-2016TUS008335

PATIENT
  Age: 57 Year
  Sex: Female

DRUGS (1)
  1. NALTREXONE, BUPROPION [Suspect]
     Active Substance: BUPROPION HYDROCHLORIDE\NALTREXONE HYDROCHLORIDE
     Indication: OVERWEIGHT
     Dosage: UNK
     Route: 065
     Dates: start: 201512

REACTIONS (4)
  - Weight fluctuation [Unknown]
  - Blood pressure increased [Unknown]
  - Insomnia [Unknown]
  - Drug ineffective [Unknown]
